FAERS Safety Report 25793795 (Version 1)
Quarter: 2025Q3

REPORT INFORMATION
  Report Type: Spontaneous
  Country: EU (occurrence: EU)
  Receive Date: 20250912
  Receipt Date: 20250912
  Transmission Date: 20251020
  Serious: Yes (Other)
  Sender: ALEXION PHARMACEUTICALS
  Company Number: EU-AstraZeneca-CH-00946713A

PATIENT
  Age: 61 Year
  Sex: Female

DRUGS (1)
  1. DURVALUMAB [Suspect]
     Active Substance: DURVALUMAB
     Route: 065

REACTIONS (9)
  - Compression fracture [Unknown]
  - Depression [Recovering/Resolving]
  - Vertebral foraminal stenosis [Unknown]
  - Spinal disorder [Unknown]
  - Exostosis [Unknown]
  - Vertebral osteophyte [Unknown]
  - Intervertebral disc compression [Unknown]
  - Dehydration [Unknown]
  - Intervertebral disc protrusion [Unknown]

NARRATIVE: CASE EVENT DATE: 20250501
